FAERS Safety Report 24306812 (Version 1)
Quarter: 2024Q3

REPORT INFORMATION
  Report Type: Spontaneous
  Country: SI (occurrence: SI)
  Receive Date: 20240911
  Receipt Date: 20240911
  Transmission Date: 20241017
  Serious: Yes (Life-Threatening, Hospitalization)
  Sender: MYLAN
  Company Number: SI-MYLANLABS-2024M1082240

PATIENT
  Age: 69 Year
  Sex: Male

DRUGS (22)
  1. PIPERACILLIN SODIUM\TAZOBACTAM SODIUM [Suspect]
     Active Substance: PIPERACILLIN SODIUM\TAZOBACTAM SODIUM
     Indication: Pneumonia
     Dosage: UNK
     Route: 065
  2. VANCOMYCIN [Suspect]
     Active Substance: VANCOMYCIN
     Indication: Pneumonia
     Dosage: 1 GRAM
     Route: 042
  3. TENOFOVIR DISOPROXIL [Suspect]
     Active Substance: TENOFOVIR DISOPROXIL
     Indication: Hepatitis B
     Dosage: 25 MILLIGRAM
     Route: 048
  4. PANTOPRAZOLE [Suspect]
     Active Substance: PANTOPRAZOLE
     Indication: Supportive care
     Dosage: 40 MILLIGRAM
     Route: 042
  5. TAZOBACTAM [Suspect]
     Active Substance: TAZOBACTAM
     Indication: Pneumonia
     Dosage: 4.5 GRAM
     Route: 065
  6. MEROPENEM [Suspect]
     Active Substance: MEROPENEM
     Indication: Pneumonia
     Dosage: UNK
     Route: 065
  7. NOREPINEPHRINE [Suspect]
     Active Substance: NOREPINEPHRINE\NOREPINEPHRINE BITARTRATE
     Indication: Hypotension
     Dosage: 10 MILLIGRAM
     Route: 065
  8. LANDIOLOL [Suspect]
     Active Substance: LANDIOLOL
     Indication: Tachycardia
     Dosage: UNK, INFUSION
     Route: 065
  9. POTASSIUM CHLORIDE [Suspect]
     Active Substance: POTASSIUM CHLORIDE
     Indication: Hypokalaemia
     Dosage: UNK
     Route: 065
  10. FENOTEROL\IPRATROPIUM BROMIDE [Suspect]
     Active Substance: FENOTEROL\IPRATROPIUM BROMIDE
     Indication: Chronic obstructive pulmonary disease
     Dosage: UNK; RECEIVED 0.5MG/0.261 MG/ML
     Route: 055
  11. SPIRONOLACTONE [Suspect]
     Active Substance: SPIRONOLACTONE
     Indication: Cardiac failure
     Dosage: 25 MILLIGRAM
     Route: 048
  12. MORPHINE [Suspect]
     Active Substance: MORPHINE
     Indication: Pain
     Dosage: 2 MILLIGRAM
     Route: 065
  13. ACETAMINOPHEN [Suspect]
     Active Substance: ACETAMINOPHEN
     Indication: Pain
     Dosage: 1 MILLIGRAM
     Route: 065
  14. FUROSEMIDE [Suspect]
     Active Substance: FUROSEMIDE
     Indication: Acute kidney injury
     Dosage: 40 MILLIGRAM
     Route: 042
  15. MAGNESIUM SULFATE [Suspect]
     Active Substance: MAGNESIUM SULFATE\MAGNESIUM SULFATE HEPTAHYDRATE
     Indication: Supportive care
     Dosage: 10 MILLIMOLE
     Route: 042
  16. THIETHYLPERAZINE [Suspect]
     Active Substance: THIETHYLPERAZINE
     Indication: Supportive care
     Dosage: 6.5 MILLIGRAM
     Route: 042
  17. CLEMASTINE [Suspect]
     Active Substance: CLEMASTINE
     Indication: Supportive care
     Dosage: 2 MILLIGRAM
     Route: 042
  18. BISACODYL [Suspect]
     Active Substance: BISACODYL
     Indication: Supportive care
     Dosage: 10 MILLIGRAM
     Route: 065
  19. MIDAZOLAM [Suspect]
     Active Substance: MIDAZOLAM
     Indication: Supportive care
     Dosage: UNK
     Route: 065
  20. ALBUTEROL [Concomitant]
     Active Substance: ALBUTEROL
     Indication: Chronic obstructive pulmonary disease
     Dosage: UNK, RECEIVED 5 MG/ML
     Route: 042
  21. HYDROCORTISONE [Concomitant]
     Active Substance: HYDROCORTISONE\HYDROCORTISONE ACETATE
     Indication: Product used for unknown indication
     Dosage: UNK
     Route: 065
  22. PROPOFOL [Concomitant]
     Active Substance: PROPOFOL
     Indication: Sedation
     Dosage: UNK
     Route: 065

REACTIONS (1)
  - Drug ineffective [Unknown]
